FAERS Safety Report 8657896 (Version 3)
Quarter: 2013Q4

REPORT INFORMATION
  Report Type: Spontaneous
  Country: US (occurrence: US)
  Receive Date: 20120710
  Receipt Date: 20131204
  Transmission Date: 20140711
  Serious: Yes (Death, Other)
  Sender: FDA-Public Use
  Company Number: US-PFIZER INC-2012161365

PATIENT
  Age: 64 Year
  Sex: Female

DRUGS (2)
  1. CHANTIX [Suspect]
     Dosage: STARTER PACK
     Dates: start: 20070524
  2. CHANTIX [Suspect]
     Dosage: CONTINUING PACK
     Dates: start: 20070807, end: 20100205

REACTIONS (1)
  - Completed suicide [Fatal]
